FAERS Safety Report 5324375-4 (Version None)
Quarter: 2007Q2

REPORT INFORMATION
  Report Type: 
  Country: None (occurrence: None)
  Receive Date: 20070514
  Receipt Date: 20070426
  Transmission Date: 20071010
  Serious: Yes (Other)
  Sender: FDA-Public Use
  Company Number: NZ-PFIZER INC-2007034655

PATIENT
  Age: 47 Year
  Sex: Female

DRUGS (2)
  1. PROVERA [Suspect]
     Indication: VAGINAL HAEMORRHAGE
     Route: 048
  2. VITAMIN B [Concomitant]

REACTIONS (3)
  - DIZZINESS [None]
  - MYOMECTOMY [None]
  - UTERINE HAEMORRHAGE [None]
